FAERS Safety Report 5912085-1 (Version None)
Quarter: 2008Q4

REPORT INFORMATION
  Report Type: 
  Country: None (occurrence: None)
  Receive Date: 20081006
  Receipt Date: 20080923
  Transmission Date: 20090506
  Serious: Yes (Other)
  Sender: FDA-Public Use
  Company Number: B0539624A

PATIENT
  Age: 66 Year
  Sex: Female

DRUGS (5)
  1. CHLORPROMAZINE HCL [Suspect]
     Indication: INSOMNIA
     Dosage: AT NIGHT
  2. OLANZAPINE [Suspect]
  3. DONEPEZIL HCL [Concomitant]
  4. RISPERIDONE [Concomitant]
  5. LORAZEPAM [Concomitant]

REACTIONS (2)
  - CATATONIA [None]
  - NEUROLEPTIC MALIGNANT SYNDROME [None]
